FAERS Safety Report 7770978-7 (Version None)
Quarter: 2011Q3

REPORT INFORMATION
  Report Type: 
  Country: None (occurrence: None)
  Receive Date: 20110922
  Receipt Date: 20100924
  Transmission Date: 20111222
  Serious: No
  Sender: FDA-Public Use
  Company Number: US-ASTRAZENECA-2010SE45274

PATIENT
  Age: 654 Month
  Sex: Male
  Weight: 88.5 kg

DRUGS (4)
  1. SEROQUEL [Suspect]
     Dosage: 200-300 MG HS
     Route: 048
  2. SEROQUEL [Suspect]
     Indication: BIPOLAR DISORDER
     Dosage: 400-600 MG HS
     Route: 048
     Dates: start: 20100301, end: 20100901
  3. SEROQUEL [Suspect]
     Dosage: 200-300 MG HS
     Route: 048
  4. SEROQUEL [Suspect]
     Indication: SLEEP DISORDER
     Dosage: 400-600 MG HS
     Route: 048
     Dates: start: 20100301, end: 20100901

REACTIONS (3)
  - INSOMNIA [None]
  - INCORRECT DOSE ADMINISTERED [None]
  - DRUG DOSE OMISSION [None]
